FAERS Safety Report 18898153 (Version 1)
Quarter: 2021Q1

REPORT INFORMATION
  Report Type: Spontaneous
  Country: US (occurrence: US)
  Receive Date: 20210216
  Receipt Date: 20210216
  Transmission Date: 20210420
  Serious: No
  Sender: FDA-Public Use
  Company Number: US-SA-2021SA051629

PATIENT
  Sex: Female

DRUGS (8)
  1. BENAZEPRIL HYDROCHLORIDE. [Concomitant]
     Active Substance: BENAZEPRIL HYDROCHLORIDE
     Dosage: 25 MG
  2. VITAMIN C [Concomitant]
     Active Substance: ASCORBIC ACID
  3. TAMSULOSIN [Concomitant]
     Active Substance: TAMSULOSIN
     Dosage: 0.4 MG
  4. LISINOPRIL. [Concomitant]
     Active Substance: LISINOPRIL
     Dosage: 30 MG
  5. VITAMIN D3 [Concomitant]
     Active Substance: CHOLECALCIFEROL
  6. CALCIUM HYDROGEN PHOSPHATE [Concomitant]
     Active Substance: CALCIUM PHOSPHATE, DIBASIC, ANHYDROUS
     Dosage: 30 MG
  7. BIOTIN [Concomitant]
     Active Substance: BIOTIN
  8. AUBAGIO [Suspect]
     Active Substance: TERIFLUNOMIDE
     Indication: MUSCULAR WEAKNESS
     Dosage: 14 MG, QD
     Route: 048

REACTIONS (2)
  - Product dose omission issue [Unknown]
  - Product use in unapproved indication [Unknown]
